FAERS Safety Report 24742335 (Version 1)
Quarter: 2024Q4

REPORT INFORMATION
  Report Type: Spontaneous
  Country: ES (occurrence: ES)
  Receive Date: 20241217
  Receipt Date: 20241217
  Transmission Date: 20250115
  Serious: No
  Sender: ORGANON
  Company Number: ES-MERCK-0206ESP00001m

PATIENT
  Sex: Female

DRUGS (1)
  1. FINASTERIDE [Suspect]
     Active Substance: FINASTERIDE
     Dosage: UNK
     Route: 065
     Dates: start: 200010, end: 200110

REACTIONS (2)
  - Exposure via body fluid [Recovered/Resolved]
  - Maternal exposure timing unspecified [Unknown]
